FAERS Safety Report 8392988-1 (Version None)
Quarter: 2012Q2

REPORT INFORMATION
  Report Type: 
  Country: None (occurrence: None)
  Receive Date: 20120529
  Receipt Date: 20120518
  Transmission Date: 20120825
  Serious: Yes (Life-Threatening, Hospitalization, Other)
  Sender: FDA-Public Use
  Company Number: JP-ASTRAZENECA-2012SE21061

PATIENT
  Age: 68 Year
  Sex: Female

DRUGS (11)
  1. CINAL [Concomitant]
     Indication: SJOGREN'S SYNDROME
     Route: 048
     Dates: start: 20090416
  2. TRANEXAMIC ACID [Concomitant]
     Route: 048
     Dates: start: 20120313, end: 20120329
  3. MEIACT [Concomitant]
     Route: 048
     Dates: start: 20120313, end: 20120329
  4. HAINO-SAN-KYU-TO [Concomitant]
     Indication: SJOGREN'S SYNDROME
     Route: 048
     Dates: start: 20100430
  5. EMPYNASE P [Concomitant]
     Route: 048
     Dates: start: 20120313, end: 20120329
  6. HUSCODE [Concomitant]
     Dates: start: 20120313, end: 20120329
  7. MEROPENEM [Suspect]
     Route: 042
     Dates: start: 20120315, end: 20120315
  8. MUCOSOLVAN L [Concomitant]
     Route: 048
     Dates: start: 20120313, end: 20120329
  9. ALINAMIN-F [Concomitant]
     Indication: SJOGREN'S SYNDROME
     Route: 048
     Dates: start: 20111027
  10. PROMACTA [Concomitant]
     Indication: SJOGREN'S SYNDROME
     Route: 048
     Dates: start: 20080419
  11. EVOXAC [Concomitant]
     Indication: SJOGREN'S SYNDROME
     Route: 048
     Dates: start: 20070914

REACTIONS (1)
  - ANAPHYLACTIC SHOCK [None]
